FAERS Safety Report 11809864 (Version 1)
Quarter: 2015Q4

REPORT INFORMATION
  Report Type: Spontaneous
  Country: US (occurrence: None)
  Receive Date: 20151207
  Receipt Date: 20151207
  Transmission Date: 20160305
  Serious: Yes (Death, Hospitalization)
  Sender: FDA-Public Use
  Company Number: None

PATIENT
  Age: 63 Year
  Sex: Male

DRUGS (5)
  1. RITUXIMAB (MOAB C2B8 ANTI CD20. CHIMERIC) [Suspect]
     Active Substance: RITUXIMAB
     Dates: end: 20150806
  2. ACYCLOVIR. [Concomitant]
     Active Substance: ACYCLOVIR
  3. CIPRO [Concomitant]
     Active Substance: CIPROFLOXACIN HYDROCHLORIDE
  4. VELCADE [Suspect]
     Active Substance: BORTEZOMIB
     Dates: end: 20150910
  5. BENDAMUSTINE HYDROCHLORIDE [Suspect]
     Active Substance: BENDAMUSTINE HYDROCHLORIDE
     Dates: end: 20150807

REACTIONS (4)
  - Generalised oedema [None]
  - Blood lactate dehydrogenase increased [None]
  - Fatigue [None]
  - Liver function test abnormal [None]

NARRATIVE: CASE EVENT DATE: 20151007
